FAERS Safety Report 12375925 (Version 1)
Quarter: 2016Q2

REPORT INFORMATION
  Report Type: Spontaneous
  Country: GB (occurrence: GB)
  Receive Date: 20160517
  Receipt Date: 20160517
  Transmission Date: 20160815
  Serious: Yes (Other)
  Sender: FDA-Public Use
  Company Number: GB-ACTAVIS-2016-09598

PATIENT
  Age: 67 Year
  Sex: Female
  Weight: 64.41 kg

DRUGS (1)
  1. GABAPENTIN (UNKNOWN) [Suspect]
     Active Substance: GABAPENTIN
     Indication: MIGRAINE
     Dosage: 600 MG, UNKNOWN
     Route: 048
     Dates: start: 20160413

REACTIONS (4)
  - Balance disorder [Unknown]
  - Alcohol interaction [Recovered/Resolved]
  - Alcohol intolerance [Recovered/Resolved]
  - Dizziness [Unknown]

NARRATIVE: CASE EVENT DATE: 20160413
